FAERS Safety Report 7404533-5 (Version None)
Quarter: 2011Q2

REPORT INFORMATION
  Report Type: 
  Country: None (occurrence: None)
  Receive Date: 20110410
  Receipt Date: 20110328
  Transmission Date: 20111010
  Serious: Yes (Other)
  Sender: FDA-Public Use
  Company Number: DE-MYLANLABS-2011S1006282

PATIENT
  Age: 68 Year
  Sex: Male
  Weight: 78 kg

DRUGS (4)
  1. BISOPROLOL [Suspect]
     Indication: PRODUCT USED FOR UNKNOWN INDICATION
     Dosage: 5MG
     Route: 048
  2. OLMETEC [Concomitant]
     Indication: HYPERTENSION
     Dosage: 1
     Dates: start: 20070101
  3. INEGY [Concomitant]
     Indication: PRODUCT USED FOR UNKNOWN INDICATION
     Dosage: 10/40 MG
     Dates: start: 19950101
  4. ASS 100 [Concomitant]
     Indication: CORONARY ARTERY DISEASE
     Dates: start: 20010101

REACTIONS (4)
  - CARDIOVASCULAR DISORDER [None]
  - SWOLLEN TONGUE [None]
  - CIRCULATORY COLLAPSE [None]
  - SALIVARY HYPERSECRETION [None]
